FAERS Safety Report 6653298-3 (Version None)
Quarter: 2010Q1

REPORT INFORMATION
  Report Type: 
  Country: None (occurrence: None)
  Receive Date: 20100326
  Receipt Date: 20100319
  Transmission Date: 20100710
  Serious: Yes (Death, Hospitalization)
  Sender: FDA-Public Use
  Company Number: JP-ROCHE-676635

PATIENT
  Age: 35 Year
  Sex: Male
  Weight: 66 kg

DRUGS (6)
  1. BEVACIZUMAB [Suspect]
     Indication: MALIGNANT GLIOMA
     Dosage: ROUTE: INTRAVENOUS (NOT OTHERWISE SPECIFIED). DISCONTINUED.
     Route: 042
     Dates: start: 20091207, end: 20091207
  2. LOXOPROFEN [Concomitant]
     Dosage: SINGLE USE
     Route: 048
     Dates: end: 20091210
  3. FAMOTIDINE [Concomitant]
     Route: 048
     Dates: end: 20091210
  4. ISOSORBID [Concomitant]
     Dosage: DRUG NAME: ISOBIDE.
     Route: 048
     Dates: end: 20091210
  5. DEPAKENE [Concomitant]
     Route: 048
     Dates: end: 20091210
  6. MS ON SHIPPU [Concomitant]
     Dosage: FORM: TAPE.  SINGLE USE.
     Route: 061
     Dates: end: 20091210

REACTIONS (1)
  - BRAIN OEDEMA [None]
